FAERS Safety Report 6402800-5 (Version None)
Quarter: 2009Q4

REPORT INFORMATION
  Report Type: 
  Country: None (occurrence: None)
  Receive Date: 20091016
  Receipt Date: 20070613
  Transmission Date: 20100525
  Serious: Yes (Other)
  Sender: FDA-Public Use
  Company Number: US-ASTRAZENECA-2006UW24030

PATIENT
  Age: 58 Year
  Sex: Female
  Weight: 55.3 kg

DRUGS (15)
  1. SEROQUEL [Suspect]
     Indication: DEPRESSION
     Route: 048
     Dates: start: 19980101
  2. SEROQUEL [Suspect]
     Indication: HALLUCINATION
     Route: 048
     Dates: start: 19980101
  3. SEROQUEL [Suspect]
     Indication: SLEEP DISORDER
     Route: 048
     Dates: start: 19980101
  4. SEROQUEL [Suspect]
     Dosage: 100 - 300 MG, DAILY, AT NIGHT
     Route: 048
     Dates: start: 20030903
  5. SEROQUEL [Suspect]
     Dosage: 100 - 300 MG, DAILY, AT NIGHT
     Route: 048
     Dates: start: 20030903
  6. SEROQUEL [Suspect]
     Dosage: 100 - 300 MG, DAILY, AT NIGHT
     Route: 048
     Dates: start: 20030903
  7. SEROQUEL [Suspect]
     Route: 048
     Dates: end: 20050101
  8. SEROQUEL [Suspect]
     Route: 048
     Dates: end: 20050101
  9. SEROQUEL [Suspect]
     Route: 048
     Dates: end: 20050101
  10. ZYPREXA [Concomitant]
     Dates: start: 20040101
  11. TOPROL-XL [Concomitant]
     Indication: PALPITATIONS
     Dosage: 50 - 100 MG AT BEDTIME
     Dates: start: 20030101
  12. NEURONTIN [Concomitant]
     Dates: start: 20041201
  13. SYNTHROID [Concomitant]
     Dosage: 50 - 75 MCG EVERYDAY
     Dates: start: 20030930
  14. ATIVAN [Concomitant]
     Dates: start: 20040708
  15. SYMBYAX [Concomitant]

REACTIONS (7)
  - CARDIAC DISORDER [None]
  - CARDIAC FAILURE CONGESTIVE [None]
  - DIABETES MELLITUS INADEQUATE CONTROL [None]
  - NERVOUS SYSTEM DISORDER [None]
  - PALPITATIONS [None]
  - TACHYCARDIA [None]
  - TYPE 2 DIABETES MELLITUS [None]
